FAERS Safety Report 7184217-1 (Version None)
Quarter: 2010Q4

REPORT INFORMATION
  Report Type: 
  Country: None (occurrence: None)
  Receive Date: 20101222
  Receipt Date: 20101220
  Transmission Date: 20110411
  Serious: Yes (Hospitalization)
  Sender: FDA-Public Use
  Company Number: JP-PFIZER INC-2003006580

PATIENT
  Age: 46 Year
  Sex: Male

DRUGS (5)
  1. ZITHROMAX [Suspect]
     Indication: PNEUMONIA
     Route: 048
     Dates: start: 20030207, end: 20030208
  2. TAZOCIN [Suspect]
     Indication: PNEUMONIA
     Dosage: 1.25 G, 2X/DAY
     Route: 042
     Dates: start: 20030205, end: 20030208
  3. OSELTAMIVIR [Suspect]
     Indication: INFLUENZA
     Dosage: BID
     Route: 048
     Dates: start: 20030131, end: 20030204
  4. TPN ELECTROLYTES IN PLASTIC CONTAINER [Concomitant]
     Route: 042
     Dates: start: 20030131
  5. VEEN D [Concomitant]
     Route: 042
     Dates: start: 20030131

REACTIONS (3)
  - DEPRESSED LEVEL OF CONSCIOUSNESS [None]
  - LIVER DISORDER [None]
  - SHOCK [None]
